FAERS Safety Report 6489620-0 (Version None)
Quarter: 2009Q4

REPORT INFORMATION
  Report Type: 
  Country: None (occurrence: None)
  Receive Date: 20091210
  Receipt Date: 20091202
  Transmission Date: 20100525
  Serious: Yes (Death)
  Sender: FDA-Public Use
  Company Number: JP-NOVOPROD-301015

PATIENT
  Age: 63 Year
  Sex: Female
  Weight: 60 kg

DRUGS (6)
  1. NOVORAPID CHU FLEXPEN [Suspect]
     Indication: DIABETES MELLITUS
     Dosage: 24 IU, QD (7-7-10-0)
     Route: 058
     Dates: start: 20060408
  2. LANTUS [Concomitant]
     Indication: DIABETES MELLITUS
     Dosage: 22 IU, QD (0-0-0-22)
     Route: 058
     Dates: start: 20081008
  3. BLOPRESS [Concomitant]
     Dosage: 8 MG, QD
  4. LIPITOR [Concomitant]
     Dosage: 10 MG, QD
  5. MUCOSTA [Concomitant]
     Dosage: 200 MG, QD
  6. PLAVIX [Concomitant]
     Dosage: 75 MG, QD

REACTIONS (1)
  - MYOCARDIAL INFARCTION [None]
